FAERS Safety Report 18169583 (Version 6)
Quarter: 2020Q4

REPORT INFORMATION
  Report Type: Spontaneous
  Country: CA (occurrence: CA)
  Receive Date: 20200818
  Receipt Date: 20201225
  Transmission Date: 20210113
  Serious: Yes (Other)
  Sender: FDA-Public Use
  Company Number: CA-CELLTRION INC.-2018CA019646

PATIENT

DRUGS (23)
  1. INFLECTRA [Suspect]
     Active Substance: INFLIXIMAB-DYYB
     Dosage: 5 MG/KG, EVERY 8 WEEKS
     Route: 042
     Dates: start: 20190809, end: 20190809
  2. INFLECTRA [Suspect]
     Active Substance: INFLIXIMAB-DYYB
     Dosage: 415 MG, UNK
     Route: 042
     Dates: start: 20190219, end: 20190219
  3. INFLECTRA [Suspect]
     Active Substance: INFLIXIMAB-DYYB
     Dosage: 5 MG/KG (OR 386 MG), EVERY 6 WEEKS
     Route: 042
     Dates: start: 20191001, end: 20191001
  4. INFLECTRA [Suspect]
     Active Substance: INFLIXIMAB-DYYB
     Dosage: 5 MG/KG, (OR 386 MG) EVERY 6 WEEKS
     Route: 042
     Dates: start: 20201105
  5. INFLECTRA [Suspect]
     Active Substance: INFLIXIMAB-DYYB
     Dosage: 167.2 MG, 0,2,6 WEEKS THEN EVERY 8 WEEKS (2 MG/KG [1 RESCUE DOSE])
     Route: 042
     Dates: start: 20180601, end: 20180601
  6. METHOTREXATE. [Concomitant]
     Active Substance: METHOTREXATE
     Indication: RHEUMATOID ARTHRITIS
     Dosage: UNK
     Route: 065
     Dates: start: 201703
  7. INFLECTRA [Suspect]
     Active Substance: INFLIXIMAB-DYYB
     Dosage: 250 MG, 0,2,6 WEEKS THEN EVERY 8 WEEKS
     Route: 042
     Dates: start: 20180410, end: 20180410
  8. INFLECTRA [Suspect]
     Active Substance: INFLIXIMAB-DYYB
     Dosage: 415 MG, UNK
     Route: 042
     Dates: start: 20190614, end: 20190614
  9. INFLECTRA [Suspect]
     Active Substance: INFLIXIMAB-DYYB
     Dosage: 5 MG/KG, EVERY 8 WEEKS
     Route: 042
     Dates: start: 20190809, end: 20190809
  10. INFLECTRA [Suspect]
     Active Substance: INFLIXIMAB-DYYB
     Dosage: 5 MG/KG (OR 386 MG), EVERY 6 WEEKS
     Route: 042
     Dates: start: 20200212, end: 20200212
  11. INFLECTRA [Suspect]
     Active Substance: INFLIXIMAB-DYYB
     Indication: RHEUMATOID ARTHRITIS
     Dosage: 250 MG, 0,2,6 WEEKS THEN EVERY 8 WEEKS
     Route: 042
     Dates: start: 20180327, end: 20180327
  12. INFLECTRA [Suspect]
     Active Substance: INFLIXIMAB-DYYB
     Dosage: 167.2 MG, 0,2,6 WEEKS THEN EVERY 8 WEEKS (2 MG/KG [1 RESCUE DOSE])
     Route: 042
     Dates: start: 20180601, end: 20180601
  13. INFLECTRA [Suspect]
     Active Substance: INFLIXIMAB-DYYB
     Dosage: 5 MG/KG (OR 386 MG), EVERY 6 WEEKS
     Route: 042
     Dates: start: 20191001, end: 20191001
  14. INFLECTRA [Suspect]
     Active Substance: INFLIXIMAB-DYYB
     Dosage: 5 MG/KG, (OR 386 MG) EVERY 6 WEEKS
     Route: 042
     Dates: start: 20200811
  15. INFLECTRA [Suspect]
     Active Substance: INFLIXIMAB-DYYB
     Dosage: 5 MG/KG, (OR 386 MG) EVERY 6 WEEKS
     Route: 042
     Dates: start: 20200923
  16. INFLECTRA [Suspect]
     Active Substance: INFLIXIMAB-DYYB
     Dosage: 250 MG, 0,2,6 WEEKS THEN EVERY 8 WEEKS
     Route: 042
     Dates: start: 20180518, end: 20180518
  17. INFLECTRA [Suspect]
     Active Substance: INFLIXIMAB-DYYB
     Dosage: 415 MG (5 MG/KG), EVERY 8 WEEKS
     Route: 042
     Dates: start: 20180706, end: 20180706
  18. INFLECTRA [Suspect]
     Active Substance: INFLIXIMAB-DYYB
     Dosage: 415 MG, UNK
     Route: 042
     Dates: start: 20181030, end: 20181030
  19. INFLECTRA [Suspect]
     Active Substance: INFLIXIMAB-DYYB
     Dosage: 415 MG, UNK
     Route: 042
     Dates: start: 20181228, end: 20181228
  20. INFLECTRA [Suspect]
     Active Substance: INFLIXIMAB-DYYB
     Dosage: 415 MG, UNK
     Route: 042
     Dates: start: 20190416, end: 20190416
  21. INFLECTRA [Suspect]
     Active Substance: INFLIXIMAB-DYYB
     Dosage: 5 MG/KG, (OR 386 MG) EVERY 6 WEEKS
     Route: 042
     Dates: start: 20200519
  22. INFLECTRA [Suspect]
     Active Substance: INFLIXIMAB-DYYB
     Dosage: 415 MG (4.83 MG/KG), UNK
     Route: 042
     Dates: start: 20180831, end: 20180831
  23. INFLECTRA [Suspect]
     Active Substance: INFLIXIMAB-DYYB
     Dosage: 5 MG/KG, (OR 386 MG) EVERY 6 WEEKS
     Route: 042
     Dates: start: 20200630

REACTIONS (16)
  - Rash [Unknown]
  - Blood pressure decreased [Unknown]
  - Ophthalmic herpes zoster [Recovering/Resolving]
  - Eye infection bacterial [Unknown]
  - Aphasia [Unknown]
  - Throat irritation [Unknown]
  - Herpes zoster [Recovering/Resolving]
  - Inappropriate schedule of product administration [Unknown]
  - Confusional state [Unknown]
  - Off label use [Unknown]
  - Off label use [Unknown]
  - Therapeutic response shortened [Unknown]
  - Fatigue [Not Recovered/Not Resolved]
  - Cough [Unknown]
  - Hypertension [Unknown]
  - Blood pressure increased [Unknown]

NARRATIVE: CASE EVENT DATE: 20180518
